FAERS Safety Report 4316433-8 (Version None)
Quarter: 2004Q1

REPORT INFORMATION
  Report Type: 
  Country: None (occurrence: None)
  Receive Date: 20040312
  Receipt Date: 20040312
  Transmission Date: 20041129
  Serious: Yes (Hospitalization)
  Sender: FDA-Public Use
  Company Number: None

PATIENT
  Age: 28 Year
  Sex: Male
  Weight: 90.7 kg

DRUGS (2)
  1. INVANZ [Suspect]
     Indication: ANKLE FRACTURE
     Dosage: 1 GRAM DAILY INTRAVENOUS
     Route: 042
     Dates: start: 20040309, end: 20040311
  2. INVANZ [Suspect]
     Indication: JOINT DISLOCATION
     Dosage: 1 GRAM DAILY INTRAVENOUS
     Route: 042
     Dates: start: 20040309, end: 20040311

REACTIONS (1)
  - PLATELET COUNT ABNORMAL [None]
